FAERS Safety Report 5056337-9 (Version None)
Quarter: 2006Q3

REPORT INFORMATION
  Report Type: 
  Country: None (occurrence: None)
  Receive Date: 20060717
  Receipt Date: 20060703
  Transmission Date: 20061208
  Serious: Yes (Death, Hospitalization, Disabling, Other)
  Sender: FDA-Public Use
  Company Number: 2006057187

PATIENT
  Age: 57 Year
  Sex: Female
  Weight: 49 kg

DRUGS (8)
  1. IDARUBICIN HYDROCHORIDE POWDER, STERILE (IDARUBICIN HYDROCHLORIDE) [Suspect]
     Indication: ACUTE MYELOID LEUKAEMIA
     Dosage: 18 MG (18 MG, QD), INTRAVENOUS
     Route: 042
     Dates: start: 20050614, end: 20050616
  2. CYTARABINE [Suspect]
     Indication: ACUTE MYELOID LEUKAEMIA
     Dosage: 280 MG (93.3 MG, TID), INTRAVENOUS
     Route: 042
     Dates: start: 20050614, end: 20050724
  3. MITOXANTRONE [Suspect]
     Indication: ACUTE MYELOID LEUKAEMIA
     Dosage: 10 MG (10 MG, QD), INTRAVENOUS
     Route: 042
     Dates: start: 20050720, end: 20050724
  4. VANCOMYCIN HYDROCHLORIDE [Concomitant]
  5. ITRACONAZOLE [Concomitant]
  6. SULFAMETHOXAZOLE + TRIMETHOPRIM [Concomitant]
  7. MEROPEN (MEROPENEM) [Concomitant]
  8. AMIKACIN SULFATE [Concomitant]

REACTIONS (14)
  - ASCITES [None]
  - ASTERIXIS [None]
  - BLOOD ALBUMIN DECREASED [None]
  - BLOOD FIBRINOGEN DECREASED [None]
  - COMA HEPATIC [None]
  - CONDITION AGGRAVATED [None]
  - ENCEPHALOPATHY [None]
  - HEPATIC FAILURE [None]
  - HEPATITIS B [None]
  - HEPATITIS FULMINANT [None]
  - IMMUNOSUPPRESSION [None]
  - PLATELET COUNT DECREASED [None]
  - PROTHROMBIN TIME PROLONGED [None]
  - WHITE BLOOD CELL COUNT DECREASED [None]
